FAERS Safety Report 6310911-8 (Version None)
Quarter: 2009Q3

REPORT INFORMATION
  Report Type: 
  Country: None (occurrence: None)
  Receive Date: 20090812
  Receipt Date: 20090728
  Transmission Date: 20100115
  Serious: Yes (Death, Hospitalization, Other)
  Sender: FDA-Public Use
  Company Number: 2009AL005096

PATIENT
  Age: 67 Year
  Sex: Male

DRUGS (4)
  1. IRINOTECAN HCL [Suspect]
     Indication: GASTRIC CANCER
     Dosage: 330 MG; IV
     Route: 042
     Dates: start: 20030102, end: 20030102
  2. CAPECITABINE [Concomitant]
  3. FERROUS SULFATE TAB [Concomitant]
  4. LANSOPRAZOLE [Concomitant]

REACTIONS (3)
  - DIZZINESS [None]
  - MOBILITY DECREASED [None]
  - PULMONARY EMBOLISM [None]
